FAERS Safety Report 21830331 (Version 2)
Quarter: 2023Q1

REPORT INFORMATION
  Report Type: Spontaneous
  Country: JP (occurrence: JP)
  Receive Date: 20230106
  Receipt Date: 20230228
  Transmission Date: 20230418
  Serious: Yes (Death, Hospitalization, Other)
  Sender: FDA-Public Use
  Company Number: JP-CHUGAI-2023000072

PATIENT
  Sex: Male
  Weight: 58 kg

DRUGS (8)
  1. TECENTRIQ [Suspect]
     Active Substance: ATEZOLIZUMAB
     Indication: Hepatocellular carcinoma
     Dosage: 1200 MILLIGRAM, SINGLE, MOST RECENT DOSE 07/DEC/2022
     Route: 041
     Dates: start: 20221207, end: 20221207
  2. AVASTIN [Suspect]
     Active Substance: BEVACIZUMAB
     Indication: Hepatocellular carcinoma
     Dosage: 15 MILLIGRAM/KILOGRAM, SINGLE, MOST RECENT DOSE 07/DEC/2022
     Route: 041
     Dates: start: 20221207, end: 20221207
  3. FUROSEMIDE [Concomitant]
     Active Substance: FUROSEMIDE
     Dosage: UNK
     Route: 065
     Dates: end: 20221229
  4. LACTULOSE [Concomitant]
     Active Substance: LACTULOSE
     Dosage: UNK
     Route: 065
     Dates: end: 20221229
  5. BISOPROLOL FUMARATE [Concomitant]
     Active Substance: BISOPROLOL FUMARATE
     Dosage: UNK
     Route: 065
     Dates: end: 20221229
  6. AMINO ACIDS, SOURCE UNSPECIFIED [Concomitant]
     Active Substance: AMINO ACIDS, SOURCE UNSPECIFIED
     Dosage: UNK
     Route: 065
     Dates: end: 20221229
  7. FEBUXOSTAT [Concomitant]
     Active Substance: FEBUXOSTAT
     Dosage: UNK
     Route: 065
     Dates: end: 20221229
  8. FERROUS SULFATE [Concomitant]
     Active Substance: FERROUS SULFATE
     Dosage: UNK
     Route: 065
     Dates: end: 20221229

REACTIONS (3)
  - Hepatic encephalopathy [Fatal]
  - Hepatic failure [Unknown]
  - Disease progression [Fatal]

NARRATIVE: CASE EVENT DATE: 20221208
